FAERS Safety Report 6843536-6 (Version None)
Quarter: 2010Q3

REPORT INFORMATION
  Report Type: 
  Country: None (occurrence: None)
  Receive Date: 20100712
  Receipt Date: 20100609
  Transmission Date: 20110219
  Serious: Yes (Hospitalization)
  Sender: FDA-Public Use
  Company Number: IND1-CH-2010-0064

PATIENT
  Age: 75 Year
  Sex: Male

DRUGS (7)
  1. INDOCID (INDOMETACIN) [Suspect]
     Indication: GOUTY ARTHRITIS
     Route: 048
     Dates: start: 20100226, end: 20100311
  2. PLAVIX [Suspect]
     Indication: PRODUCT USED FOR UNKNOWN INDICATION
     Dosage: 1 (1, 1 IN 1 D)
     Dates: start: 20100601
  3. ASPIRIN [Suspect]
     Indication: PRODUCT USED FOR UNKNOWN INDICATION
     Dosage: 100 MG, ORAL
     Route: 048
     Dates: start: 20090601
  4. MEPHANOL (ALLOPURINOL) (ALLOPURINOL) [Concomitant]
  5. BELOC ZOK (METOPROLOL SUCCINATE) (METOPROLOLSUCCINATE) [Concomitant]
  6. DIOVAN [Concomitant]
  7. AMLODIPINE [Concomitant]

REACTIONS (8)
  - ANAEMIA [None]
  - ATRIOVENTRICULAR BLOCK FIRST DEGREE [None]
  - DRUG ABUSE [None]
  - DUODENAL ULCER [None]
  - GASTRITIS EROSIVE [None]
  - GASTROINTESTINAL HAEMORRHAGE [None]
  - MELAENA [None]
  - SYNCOPE [None]
